FAERS Safety Report 10657973 (Version 2)
Quarter: 2014Q4

REPORT INFORMATION
  Report Type: Spontaneous
  Country: US (occurrence: US)
  Receive Date: 20141217
  Receipt Date: 20141217
  Transmission Date: 20150529
  Serious: No
  Sender: FDA-Public Use
  Company Number: US-GLAXOSMITHKLINE-A1058085A

PATIENT

DRUGS (9)
  1. ZOFRAN [Concomitant]
     Active Substance: ONDANSETRON HYDROCHLORIDE
  2. VOTRIENT [Suspect]
     Active Substance: PAZOPANIB HYDROCHLORIDE
     Indication: RENAL CANCER
     Dosage: 200 MG AT 800 MG DAILY DECREASED TO 400 MG DAILY
     Dates: start: 20131228
  3. ECOTRIN [Concomitant]
     Active Substance: ASPIRIN
  4. VOTRIENT [Suspect]
     Active Substance: PAZOPANIB HYDROCHLORIDE
     Dates: start: 20131228
  5. VOTRIENT [Suspect]
     Active Substance: PAZOPANIB HYDROCHLORIDE
     Indication: NEOPLASM MALIGNANT
     Dates: start: 20131228
  6. VOTRIENT [Suspect]
     Active Substance: PAZOPANIB HYDROCHLORIDE
     Dates: start: 20131228
  7. DIOVAN [Concomitant]
     Active Substance: VALSARTAN
  8. TYLENOL [Suspect]
     Active Substance: ACETAMINOPHEN
     Indication: THROAT IRRITATION
  9. COLACE [Concomitant]
     Active Substance: DOCUSATE SODIUM

REACTIONS (15)
  - Throat irritation [Unknown]
  - Headache [Unknown]
  - Hypotension [Unknown]
  - Diarrhoea [Unknown]
  - Arthropathy [Unknown]
  - Blood calcium abnormal [Unknown]
  - Urticaria [Unknown]
  - Chapped lips [Unknown]
  - Hair colour changes [Unknown]
  - Oral discomfort [Unknown]
  - Drug ineffective [Unknown]
  - Hypertension [Unknown]
  - Pallor [Unknown]
  - Ageusia [Unknown]
  - Blood calcium increased [Unknown]
